FAERS Safety Report 6078279-2 (Version None)
Quarter: 2009Q1

REPORT INFORMATION
  Report Type: 
  Country: None (occurrence: None)
  Receive Date: 20090213
  Receipt Date: 20090204
  Transmission Date: 20090719
  Serious: Yes (Hospitalization)
  Sender: FDA-Public Use
  Company Number: GB-GENENTECH-266726

PATIENT
  Age: 7 Year
  Sex: Female

DRUGS (6)
  1. MABTHERA [Suspect]
     Indication: EVANS SYNDROME
     Dosage: 375 MG/M2, UNK
     Route: 041
  2. MABTHERA [Suspect]
     Indication: LYMPHOPROLIFERATIVE DISORDER
  3. MYCOPHENOLATE MOFETIL [Suspect]
     Indication: EVANS SYNDROME
     Route: 065
  4. CYCLOSPORINE [Suspect]
     Indication: EVANS SYNDROME
     Route: 065
  5. IMMUNE GLOBULIN INTRAVENOUS (HUMAN) [Suspect]
     Indication: EVANS SYNDROME
     Route: 041
  6. PREDNISOLONE [Suspect]
     Indication: EVANS SYNDROME
     Route: 065

REACTIONS (8)
  - ANOREXIA [None]
  - BONE MARROW TRANSPLANT [None]
  - DILATATION VENTRICULAR [None]
  - LUNG DISORDER [None]
  - LYMPHOPROLIFERATIVE DISORDER [None]
  - PULMONARY HYPERTENSION [None]
  - RESPIRATORY DISORDER [None]
  - TRICUSPID VALVE INCOMPETENCE [None]
